FAERS Safety Report 6538370-0 (Version None)
Quarter: 2010Q1

REPORT INFORMATION
  Report Type: 
  Country: None (occurrence: None)
  Receive Date: 20100114
  Receipt Date: 20100106
  Transmission Date: 20100710
  Serious: Yes (Death)
  Sender: FDA-Public Use
  Company Number: CH-WYE-H12976310

PATIENT
  Age: 67 Year
  Sex: Male

DRUGS (6)
  1. CORDARONE [Suspect]
     Indication: DRUG USE FOR UNKNOWN INDICATION
     Route: 065
     Dates: start: 20090101, end: 20090101
  2. DIAMICRON [Concomitant]
  3. ASPIRIN [Concomitant]
  4. METFORMIN HYDROCHLORIDE [Concomitant]
  5. PARACETAMOL [Suspect]
     Indication: DRUG USE FOR UNKNOWN INDICATION
     Dosage: 4000 MG TOTAL OVER 3 DAYS
     Dates: start: 20091126, end: 20091128
  6. BELOC ZOK [Concomitant]

REACTIONS (2)
  - CIRCULATORY COLLAPSE [None]
  - HEPATOCELLULAR INJURY [None]
